FAERS Safety Report 12423416 (Version 1)
Quarter: 2016Q2

REPORT INFORMATION
  Report Type: Spontaneous
  Country: US (occurrence: None)
  Receive Date: 20160531
  Receipt Date: 20160531
  Transmission Date: 20160815
  Serious: Yes (Disabling)
  Sender: FDA-Public Use
  Company Number: None

PATIENT
  Age: 66 Year
  Sex: Female
  Weight: 48.99 kg

DRUGS (6)
  1. CALCIUM [Concomitant]
     Active Substance: CALCIUM
  2. FLAX SEED [Concomitant]
     Active Substance: FLAX SEED
  3. ALPHA LIPOICA ACID [Concomitant]
  4. TURMERIC [Concomitant]
     Active Substance: TURMERIC
  5. PROBIOTICS [Concomitant]
     Active Substance: PROBIOTICS NOS
  6. LIALDA [Suspect]
     Active Substance: MESALAMINE
     Indication: COLITIS ULCERATIVE
     Route: 048

REACTIONS (6)
  - Abasia [None]
  - Peripheral venous disease [None]
  - Peripheral swelling [None]
  - Skin discolouration [None]
  - Gait disturbance [None]
  - Pain in extremity [None]

NARRATIVE: CASE EVENT DATE: 20160203
